FAERS Safety Report 17609466 (Version 3)
Quarter: 2020Q2

REPORT INFORMATION
  Report Type: Spontaneous
  Country: FR (occurrence: FR)
  Receive Date: 20200401
  Receipt Date: 20200406
  Transmission Date: 20200713
  Serious: Yes (Death, Other)
  Sender: FDA-Public Use
  Company Number: FR-ABBVIE-20K-056-3346561-00

PATIENT
  Age: 75 Year
  Sex: Male

DRUGS (2)
  1. KALETRA [Suspect]
     Active Substance: LOPINAVIR\RITONAVIR
     Dosage: KALETRA 80 MG/20 MG, SOLUTION BUVABLE
     Route: 048
     Dates: start: 20200318, end: 20200320
  2. KALETRA [Suspect]
     Active Substance: LOPINAVIR\RITONAVIR
     Indication: CORONAVIRUS INFECTION
     Route: 048
     Dates: start: 20200312, end: 20200315

REACTIONS (4)
  - Vomiting [Recovered/Resolved]
  - Death [Fatal]
  - Hepatocellular injury [Recovered/Resolved]
  - Drug level increased [Recovered/Resolved]

NARRATIVE: CASE EVENT DATE: 20200313
